FAERS Safety Report 23888504 (Version 1)
Quarter: 2024Q2

REPORT INFORMATION
  Report Type: Spontaneous
  Country: US (occurrence: None)
  Receive Date: 20240522
  Receipt Date: 20240522
  Transmission Date: 20240716
  Serious: Yes (Hospitalization)
  Sender: FDA-Public Use
  Company Number: None

PATIENT
  Sex: Female

DRUGS (1)
  1. ENBREL [Suspect]
     Active Substance: BENZYL ALCOHOL\ETANERCEPT
     Indication: Rheumatoid arthritis
     Dosage: 50MG ONCE WEEKLY SUBCUTANEOUSLY
     Dates: start: 202208

REACTIONS (4)
  - Chest pain [None]
  - Pain in extremity [None]
  - Electrocardiogram abnormal [None]
  - Blood iron decreased [None]
